FAERS Safety Report 7546261-1 (Version None)
Quarter: 2011Q2

REPORT INFORMATION
  Report Type: 
  Country: None (occurrence: None)
  Receive Date: 20110614
  Receipt Date: 20060530
  Transmission Date: 20111010
  Serious: Yes (Other)
  Sender: FDA-Public Use
  Company Number: PHEH2006US07090

PATIENT

DRUGS (1)
  1. EXJADE [Suspect]

REACTIONS (1)
  - SERUM SICKNESS-LIKE REACTION [None]
